FAERS Safety Report 11094060 (Version 2)
Quarter: 2015Q2

REPORT INFORMATION
  Report Type: Spontaneous
  Country: US (occurrence: US)
  Receive Date: 20150506
  Receipt Date: 20150521
  Transmission Date: 20150821
  Serious: Yes (Other)
  Sender: FDA-Public Use
  Company Number: US-LPDUSPRD-20150273

PATIENT
  Sex: Female

DRUGS (6)
  1. VENOFER [Suspect]
     Active Substance: IRON SUCROSE
     Dosage: DOSE NOT PROVIDED
     Route: 042
     Dates: start: 2003, end: 2015
  2. POTASSIUM [Concomitant]
     Active Substance: POTASSIUM
     Dosage: DOSE NOT PROVIDED/AS NEEDED
     Route: 048
  3. VITAMIN B12 [Concomitant]
     Active Substance: CYANOCOBALAMIN
     Dosage: DOSE NOT PROVIDED/AS NEEDED
     Route: 051
  4. VITAMIN B12 [Concomitant]
     Active Substance: CYANOCOBALAMIN
     Dosage: DOSE NOT PROVIDED/AS NEEDED
     Route: 060
  5. VITAMIN C [Concomitant]
     Active Substance: ASCORBIC ACID
     Dosage: DOSE NOT PROVIDED; TAKEN DAILY
     Route: 046
  6. VITAMIN D [Concomitant]
     Active Substance: CHOLECALCIFEROL
     Dosage: DOSE NOT PROVIDED, TAKEN DAILY
     Route: 048

REACTIONS (3)
  - Exposure during pregnancy [Unknown]
  - Off label use [Unknown]
  - Abortion spontaneous [Unknown]

NARRATIVE: CASE EVENT DATE: 2003
